FAERS Safety Report 4644014-5 (Version None)
Quarter: 2005Q1

REPORT INFORMATION
  Report Type: 
  Country: None (occurrence: None)
  Receive Date: 20050331
  Receipt Date: 20041220
  Transmission Date: 20050727
  Serious: Yes (Hospitalization)
  Sender: FDA-Public Use
  Company Number: 04P-163-0284048-00

PATIENT
  Age: 76 Year
  Sex: Female

DRUGS (7)
  1. HUMIRA [Suspect]
     Indication: RHEUMATOID ARTHRITIS
     Dosage: 40 MG, 1 IN 2, SUBCUTANEOUS
     Route: 058
     Dates: start: 20030814, end: 20041203
  2. AMLODIPINE BESYLATE [Concomitant]
  3. PREDNISONE [Concomitant]
  4. FUROSEMIDE [Concomitant]
  5. LEFLUNOMIDE [Concomitant]
  6. POTASSIUM CHLORIDE [Concomitant]
  7. FAMOTIDINE [Concomitant]

REACTIONS (5)
  - BODY TEMPERATURE INCREASED [None]
  - CANDIDIASIS [None]
  - CYSTITIS [None]
  - KIDNEY INFECTION [None]
  - SEPSIS [None]
